FAERS Safety Report 8992693 (Version 2)
Quarter: 2013Q1

REPORT INFORMATION
  Report Type: Report from Study
  Country: BE (occurrence: BE)
  Receive Date: 20130101
  Receipt Date: 20130206
  Transmission Date: 20140127
  Serious: Yes (Hospitalization)
  Sender: FDA-Public Use
  Company Number: BE-ROCHE-1175158

PATIENT
  Age: 75 Year
  Sex: Female
  Weight: 55 kg

DRUGS (9)
  1. BEVACIZUMAB [Suspect]
     Indication: COLORECTAL CANCER METASTATIC
     Route: 065
     Dates: start: 20120330, end: 20121005
  2. FOLINIC ACID [Suspect]
     Indication: COLORECTAL CANCER METASTATIC
     Route: 065
     Dates: start: 20120330, end: 20121005
  3. 5-FLUOROURACIL [Suspect]
     Indication: COLORECTAL CANCER METASTATIC
     Route: 065
     Dates: start: 20120330, end: 20121005
  4. OXALIPLATIN [Suspect]
     Indication: COLORECTAL CANCER METASTATIC
     Route: 065
     Dates: start: 20120330, end: 20121005
  5. TRAZODONE [Concomitant]
     Indication: DEPRESSION
     Route: 048
     Dates: start: 201204
  6. PANTOMED (PANTOPRAZOLE) [Concomitant]
     Route: 048
  7. XANAX [Concomitant]
     Indication: DEPRESSION
     Route: 048
  8. CONTRAMAL [Concomitant]
     Indication: PAIN
     Route: 048
  9. L-THYROXINE ROCHE [Concomitant]
     Indication: HYPOTHYROIDISM
     Dosage: 0,25 MG
     Route: 048
     Dates: start: 201210

REACTIONS (2)
  - Abdominal pain [Not Recovered/Not Resolved]
  - Disease progression [Recovered/Resolved]
